FAERS Safety Report 4687836-7 (Version None)
Quarter: 2005Q2

REPORT INFORMATION
  Report Type: 
  Country: None (occurrence: None)
  Receive Date: 20050610
  Receipt Date: 20050610
  Transmission Date: 20051028
  Serious: Yes (Hospitalization)
  Sender: FDA-Public Use
  Company Number: None

PATIENT
  Age: 51 Year
  Sex: Male
  Weight: 122.3 kg

DRUGS (11)
  1. GATIFLOXACIN [Suspect]
     Indication: INFECTION
     Dosage: 400MG   DAILY   ORAL
     Route: 048
     Dates: start: 20050113, end: 20050120
  2. CARBAMAZEPINE [Concomitant]
  3. CITALOPRAM [Concomitant]
  4. DOCUSATE [Concomitant]
  5. DOXAZOSIN [Concomitant]
  6. TIZANIDINE HCL [Concomitant]
  7. INSULIN 70/30 -HUMAN- [Concomitant]
  8. METOPROLOL [Concomitant]
  9. NIFEDIPINE [Concomitant]
  10. RANITIDINE [Concomitant]
  11. SIMVASTATIN [Concomitant]

REACTIONS (4)
  - DIABETES MELLITUS [None]
  - HYPERGLYCAEMIA [None]
  - HYPEROSMOLAR STATE [None]
  - WEIGHT INCREASED [None]
